FAERS Safety Report 8382337-7 (Version None)
Quarter: 2012Q2

REPORT INFORMATION
  Report Type: 
  Country: None (occurrence: None)
  Receive Date: 20120524
  Receipt Date: 20120421
  Transmission Date: 20120825
  Serious: No
  Sender: FDA-Public Use
  Company Number: US-PFIZER INC-2012122776

PATIENT
  Sex: Female
  Weight: 74.83 kg

DRUGS (6)
  1. LYRICA [Suspect]
     Indication: HEADACHE
  2. LYRICA [Suspect]
     Indication: EYE PAIN
  3. LYRICA [Suspect]
     Indication: POST HERPETIC NEURALGIA
     Dosage: 150 MG, UNK
  4. LYRICA [Suspect]
     Indication: PRURITUS
     Dosage: 75 MG, 1X/DAY
     Route: 048
     Dates: start: 20120513
  5. LYRICA [Suspect]
     Indication: HERPES ZOSTER
  6. XANAX [Concomitant]
     Indication: SLEEP DISORDER
     Dosage: UNK

REACTIONS (4)
  - MUSCLE SPASMS [None]
  - PRURITUS [None]
  - HEADACHE [None]
  - THERAPEUTIC RESPONSE UNEXPECTED [None]
